FAERS Safety Report 16126409 (Version 1)
Quarter: 2019Q2

REPORT INFORMATION
  Report Type: Spontaneous
  Country: US (occurrence: US)
  Receive Date: 20190327
  Receipt Date: 20190327
  Transmission Date: 20190711
  Serious: Yes (Other)
  Sender: FDA-Public Use
  Company Number: None

PATIENT
  Age: 65 Year
  Sex: Female
  Weight: 87.75 kg

DRUGS (2)
  1. ACYCLOVIR 800 MG TABLET [Suspect]
     Active Substance: ACYCLOVIR SODIUM
     Indication: HERPES ZOSTER
     Dosage: ?          QUANTITY:1 TABLET(S);OTHER FREQUENCY:5 TIMES DAILY;?
     Route: 048
     Dates: start: 20190319, end: 20190327
  2. ACYCLOVIR 800 MG TABLET [Suspect]
     Active Substance: ACYCLOVIR SODIUM
     Indication: HEADACHE
     Dosage: ?          QUANTITY:1 TABLET(S);OTHER FREQUENCY:5 TIMES DAILY;?
     Route: 048
     Dates: start: 20190319, end: 20190327

REACTIONS (2)
  - Malignant hypertension [None]
  - Hypertension [None]

NARRATIVE: CASE EVENT DATE: 20190326
